FAERS Safety Report 17831684 (Version 2)
Quarter: 2020Q2

REPORT INFORMATION
  Report Type: Spontaneous
  Country: US (occurrence: US)
  Receive Date: 20200527
  Receipt Date: 20200617
  Transmission Date: 20200714
  Serious: Yes (Death, Hospitalization, Other)
  Sender: FDA-Public Use
  Company Number: US-GILEAD-2020-0468502

PATIENT
  Age: 73 Year
  Sex: Male
  Weight: 101 kg

DRUGS (29)
  1. REMDESIVIR. [Suspect]
     Active Substance: REMDESIVIR
     Indication: COVID-19
     Dosage: 200 MG
     Route: 065
     Dates: start: 20200519, end: 20200520
  2. ACETAMINOPHEN. [Concomitant]
     Active Substance: ACETAMINOPHEN
  3. MAGNESIUM OXIDE. [Concomitant]
     Active Substance: MAGNESIUM OXIDE
  4. PROTONIX [OMEPRAZOLE] [Concomitant]
     Active Substance: OMEPRAZOLE
  5. AMIODARONE [Concomitant]
     Active Substance: AMIODARONE
  6. AZTREONAM. [Concomitant]
     Active Substance: AZTREONAM
  7. CALCIUM CHLORIDE. [Concomitant]
     Active Substance: CALCIUM CHLORIDE
  8. HYDROCORTISONE. [Concomitant]
     Active Substance: HYDROCORTISONE
  9. ISOSORBIDE. [Concomitant]
     Active Substance: ISOSORBIDE
  10. ROCURONIUM [Concomitant]
     Active Substance: ROCURONIUM BROMIDE
  11. APIXABAN [Concomitant]
     Active Substance: APIXABAN
  12. FENTANYL. [Concomitant]
     Active Substance: FENTANYL
  13. CHLORHEXIDINE [Concomitant]
     Active Substance: CHLORHEXIDINE
  14. MAGNESIUM SULFATE. [Concomitant]
     Active Substance: MAGNESIUM SULFATE
  15. SINGULAIR [Concomitant]
     Active Substance: MONTELUKAST SODIUM
  16. KCL [Concomitant]
     Active Substance: POTASSIUM CHLORIDE
  17. CALCIUM GLUCONATE. [Concomitant]
     Active Substance: CALCIUM GLUCONATE
  18. MIDAZOLAM. [Concomitant]
     Active Substance: MIDAZOLAM
  19. FLOLAN [Concomitant]
     Active Substance: EPOPROSTENOL SODIUM
  20. ATORVASTATIN [Concomitant]
     Active Substance: ATORVASTATIN
  21. CEFTRIAXONE. [Concomitant]
     Active Substance: CEFTRIAXONE
  22. BENADRYL 24 D [Concomitant]
     Active Substance: LORATADINE\PSEUDOEPHEDRINE SULFATE
  23. FAMOTIDINE. [Concomitant]
     Active Substance: FAMOTIDINE
  24. BREO ELLIPTA [Concomitant]
     Active Substance: FLUTICASONE FUROATE\VILANTEROL TRIFENATATE
  25. LABETALOL [Concomitant]
     Active Substance: LABETALOL\LABETALOL HYDROCHLORIDE
  26. VERAPAMIL [Concomitant]
     Active Substance: VERAPAMIL HYDROCHLORIDE
  27. ASPIRIN (E.C.) [Concomitant]
     Active Substance: ASPIRIN
  28. FUROSEMIDE. [Concomitant]
     Active Substance: FUROSEMIDE
  29. HEPARIN [Concomitant]
     Active Substance: HEPARIN SODIUM

REACTIONS (7)
  - Glomerular filtration rate decreased [Unknown]
  - Pneumonia viral [Fatal]
  - Blood creatinine increased [Unknown]
  - Renal failure [Unknown]
  - Acute respiratory distress syndrome [Fatal]
  - Aspartate aminotransferase increased [Unknown]
  - Alanine aminotransferase increased [Unknown]

NARRATIVE: CASE EVENT DATE: 20200520
